FAERS Safety Report 22225092 (Version 6)
Quarter: 2024Q1

REPORT INFORMATION
  Report Type: Report from Study
  Country: CA (occurrence: CA)
  Receive Date: 20230418
  Receipt Date: 20240315
  Transmission Date: 20240410
  Serious: No
  Sender: FDA-Public Use
  Company Number: CA-BAUSCH-BL-2023-006049

PATIENT
  Age: 40 Year
  Sex: Female
  Weight: 108.96 kg

DRUGS (8)
  1. CONTRAVE [Suspect]
     Active Substance: BUPROPION HYDROCHLORIDE\NALTREXONE HYDROCHLORIDE
     Indication: Weight control
     Dosage: 90/8 MG
     Route: 048
     Dates: start: 2023, end: 2023
  2. CONTRAVE [Suspect]
     Active Substance: BUPROPION HYDROCHLORIDE\NALTREXONE HYDROCHLORIDE
     Dosage: 90/8 MG, 4 TABLETS/DAY
     Route: 048
     Dates: start: 20230520, end: 20240301
  3. SAXENDA [Concomitant]
     Active Substance: LIRAGLUTIDE
     Indication: Weight control
     Dosage: STOPPED SAXENDA (WHILE TAKING CONTRAVE - DATE UNKNOWN)
  4. SAXENDA [Concomitant]
     Active Substance: LIRAGLUTIDE
     Dates: start: 202401
  5. SYMBICORT [Concomitant]
     Active Substance: BUDESONIDE\FORMOTEROL FUMARATE DIHYDRATE
     Indication: Asthma
  6. ATIVAN [Concomitant]
     Active Substance: LORAZEPAM
     Indication: Anxiety
  7. VITAMINS [Concomitant]
     Active Substance: VITAMINS
     Indication: Vitamin supplementation
  8. PROBIOTICS NOS [Concomitant]
     Active Substance: PROBIOTICS NOS
     Indication: Supplementation therapy

REACTIONS (10)
  - Food craving [Not Recovered/Not Resolved]
  - Binge eating [Not Recovered/Not Resolved]
  - Insomnia [Recovered/Resolved]
  - Anxiety [Unknown]
  - Palpitations [Unknown]
  - Therapeutic product effect variable [Unknown]
  - Product prescribing issue [Unknown]
  - Therapeutic response unexpected [Unknown]
  - Product dose omission issue [Unknown]
  - Labelled drug-food interaction medication error [Unknown]

NARRATIVE: CASE EVENT DATE: 20230101
